FAERS Safety Report 8370772-2 (Version None)
Quarter: 2012Q2

REPORT INFORMATION
  Report Type: 
  Country: None (occurrence: None)
  Receive Date: 20120518
  Receipt Date: 20120515
  Transmission Date: 20120825
  Serious: Yes (Life-Threatening, Hospitalization)
  Sender: FDA-Public Use
  Company Number: CA-PFIZER INC-2012118595

PATIENT
  Age: 62 Year
  Sex: Male

DRUGS (8)
  1. NOVO-RABEPRAZOLE [Concomitant]
     Dosage: UNK
  2. SUNITINIB MALATE [Suspect]
     Indication: RENAL CELL CARCINOMA
     Dosage: 50 MG, 1X/DAY
     Route: 048
     Dates: start: 20090911, end: 20100211
  3. METFORMIN [Concomitant]
  4. ADALAT [Concomitant]
  5. SUNITINIB MALATE [Suspect]
     Dosage: 50 MG, 1X/DAY
  6. SUNITINIB MALATE [Suspect]
     Dosage: 37.5 MG, 1X/DAY
     Dates: start: 20100301, end: 20111120
  7. ENALAPRIL MALEATE [Concomitant]
  8. LEVOTHYROXINE SODIUM [Concomitant]

REACTIONS (1)
  - MYOCARDIAL INFARCTION [None]
